FAERS Safety Report 10841486 (Version 2)
Quarter: 2015Q1

REPORT INFORMATION
  Report Type: Spontaneous
  Country: US (occurrence: US)
  Receive Date: 20150220
  Receipt Date: 20150319
  Transmission Date: 20150721
  Serious: Yes (Other)
  Sender: FDA-Public Use
  Company Number: US-AUROBINDO-AUR-APU-2015-01287

PATIENT
  Age: 73 Year
  Sex: Male

DRUGS (1)
  1. LOSARTAN POTASSIUM TABLETS USP 100MG [Suspect]
     Active Substance: LOSARTAN POTASSIUM
     Indication: HYPERTENSION
     Dosage: 1 DF, DAILY
     Route: 065
     Dates: start: 20150110, end: 20150112

REACTIONS (5)
  - Myalgia [Recovered/Resolved]
  - Sleep disorder [Recovered/Resolved]
  - Product substitution issue [Recovered/Resolved]
  - Muscle spasms [Recovered/Resolved]
  - Discomfort [Recovered/Resolved]

NARRATIVE: CASE EVENT DATE: 20150110
